FAERS Safety Report 14830149 (Version 1)
Quarter: 2018Q2

REPORT INFORMATION
  Report Type: Report from Study
  Country: GB (occurrence: DE)
  Receive Date: 20180430
  Receipt Date: 20180430
  Transmission Date: 20180711
  Serious: Yes (Death)
  Sender: FDA-Public Use
  Company Number: GB-BAUSCH-BL-2018-011803

PATIENT
  Age: 60 Year
  Sex: Female
  Weight: 40 kg

DRUGS (40)
  1. NOVALGIN (METAMIZOLE SODIUM) [Suspect]
     Active Substance: METAMIZOLE SODIUM
     Indication: PAIN
     Route: 048
     Dates: start: 19980811, end: 19980811
  2. DIGIMERCK [Suspect]
     Active Substance: DIGITOXIN
     Indication: CARDIAC FAILURE
     Route: 048
     Dates: start: 19980812
  3. ISOKET [Suspect]
     Active Substance: ISOSORBIDE DINITRATE
     Indication: HYPERTENSION
     Route: 048
     Dates: start: 19980818
  4. DILATREND [Suspect]
     Active Substance: CARVEDILOL
     Indication: HYPERTENSION
     Route: 048
     Dates: start: 19980811
  5. TAGAMET [Concomitant]
     Active Substance: CIMETIDINE
     Indication: PROPHYLAXIS AGAINST GASTROINTESTINAL ULCER
     Dosage: 1 (DAILY DOSE)
     Route: 042
     Dates: start: 19980826, end: 19980826
  6. IRENAT [Concomitant]
     Active Substance: SODIUM PERCHLORATE
     Indication: HYPERTHYROIDISM
     Route: 048
     Dates: end: 19980828
  7. SORTIS [Concomitant]
     Active Substance: ATORVASTATIN
     Indication: LIPIDS INCREASED
     Route: 048
     Dates: start: 19980826
  8. ENALAPRIL MALEATE. [Suspect]
     Active Substance: ENALAPRIL MALEATE
     Indication: HYPERTENSION
     Route: 048
     Dates: start: 19980811, end: 19980817
  9. POTASSIUM CARBONATE W/POTASSIUM CITRATE [Concomitant]
     Indication: BLOOD POTASSIUM DECREASED
     Route: 048
     Dates: start: 19980821, end: 19980821
  10. TAVEGIL [Concomitant]
     Active Substance: CLEMASTINE FUMARATE
     Indication: ERYTHEMA
     Dosage: 1 (DAILY DOSE)
     Route: 042
     Dates: start: 19980826, end: 19980826
  11. AMINOQUINURIDE HYDROCHLORIDE/INSULIN ZINC SUSPENSION [Concomitant]
     Indication: DIABETES MELLITUS
     Route: 058
  12. POTASSIUM CHLORIDE. [Concomitant]
     Active Substance: POTASSIUM CHLORIDE
     Indication: BLOOD POTASSIUM DECREASED
     Route: 048
     Dates: start: 19980814, end: 19980814
  13. LASIX [Suspect]
     Active Substance: FUROSEMIDE
     Indication: CARDIAC FAILURE
     Route: 048
     Dates: end: 19980406
  14. SOLU-DECORTIN-H [Concomitant]
     Active Substance: PREDNISOLONE SODIUM SUCCINATE
     Indication: ERYTHEMA
     Route: 042
     Dates: start: 19980826, end: 19980826
  15. PASPERTIN [Concomitant]
     Route: 048
     Dates: start: 19980814, end: 19980818
  16. PASPERTIN [Concomitant]
     Route: 048
     Dates: start: 19980820, end: 19980820
  17. DEXPANTHENOL. [Concomitant]
     Active Substance: DEXPANTHENOL
     Indication: CIRCULATORY COLLAPSE
     Dosage: 4 (DAILY DOSE)
     Route: 042
     Dates: start: 19980808, end: 19980808
  18. PARACETAMOL [Concomitant]
     Active Substance: ACETAMINOPHEN
     Indication: ANALGESIC THERAPY
     Dates: start: 19980826
  19. DOPMIN [Concomitant]
     Indication: CIRCULATORY COLLAPSE
     Route: 042
     Dates: start: 19980808, end: 19980808
  20. HEPARIN-CALCIUM [Suspect]
     Active Substance: HEPARIN CALCIUM
     Indication: THROMBOSIS PROPHYLAXIS
     Route: 058
     Dates: start: 19980811, end: 19980818
  21. AQUAPHOR [Suspect]
     Active Substance: PETROLATUM
     Indication: PRODUCT USED FOR UNKNOWN INDICATION
     Route: 065
  22. KALIUMKLORID [Concomitant]
     Route: 042
     Dates: start: 19980828, end: 19980828
  23. NOVODIGAL [Concomitant]
     Indication: CARDIAC FAILURE
     Route: 048
     Dates: end: 19980812
  24. VANCOMYCIN [Suspect]
     Active Substance: VANCOMYCIN
     Indication: PNEUMONIA
     Route: 042
     Dates: start: 19980821, end: 19980826
  25. ANTRA [Concomitant]
     Active Substance: OMEPRAZOLE
     Indication: PROPHYLAXIS AGAINST GASTROINTESTINAL ULCER
     Route: 048
     Dates: end: 19980818
  26. KALIUMKLORID [Concomitant]
     Indication: BLOOD POTASSIUM DECREASED
     Route: 048
     Dates: start: 19980818, end: 19980820
  27. POTASSIUM CARBONATE W/POTASSIUM CITRATE [Concomitant]
     Route: 048
     Dates: start: 19980824, end: 19980825
  28. GLUCOSE [Concomitant]
     Active Substance: DEXTROSE
     Indication: FLUID REPLACEMENT
     Route: 042
     Dates: start: 19980824, end: 19980824
  29. CARBIMAZOL [Concomitant]
     Active Substance: CARBIMAZOLE
     Indication: HYPERTHYROIDISM
     Route: 048
  30. EUGLUCON [Suspect]
     Active Substance: GLYBURIDE
     Route: 048
     Dates: start: 19980820, end: 19980821
  31. ASPIRIN. [Suspect]
     Active Substance: ASPIRIN
     Indication: THROMBOSIS PROPHYLAXIS
     Route: 048
  32. PASPERTIN [Concomitant]
     Indication: NAUSEA
     Route: 042
     Dates: start: 19980808, end: 19980826
  33. BENZYLPENICILLIN SODIUM [Suspect]
     Active Substance: PENICILLIN G SODIUM
     Indication: PNEUMONIA
     Route: 042
     Dates: start: 19980821, end: 19980826
  34. UNAT [Suspect]
     Active Substance: TORSEMIDE
     Indication: CARDIAC FAILURE
     Route: 048
     Dates: start: 19980808
  35. LOPIRIN COR [Concomitant]
     Active Substance: CAPTOPRIL
     Indication: HYPERTENSION
     Route: 048
     Dates: end: 19980806
  36. ZOCOR [Concomitant]
     Active Substance: SIMVASTATIN
     Indication: HYPERTENSION
     Route: 048
     Dates: start: 19980803, end: 19980818
  37. EUGLUCON [Suspect]
     Active Substance: GLYBURIDE
     Indication: DIABETES MELLITUS
     Route: 048
     Dates: end: 19980818
  38. XANEF (ENALAPRIL MALEATE) [Suspect]
     Active Substance: ENALAPRIL MALEATE
     Indication: HYPERTENSION
     Route: 048
     Dates: start: 19980818
  39. ZIENAM [Concomitant]
     Active Substance: CILASTATIN SODIUM\IMIPENEM
     Indication: SEPSIS
     Route: 042
     Dates: start: 19980828
  40. PASPERTIN [Concomitant]
     Route: 048
     Dates: start: 19980821

REACTIONS (2)
  - Toxic epidermal necrolysis [Fatal]
  - Circulatory collapse [Fatal]

NARRATIVE: CASE EVENT DATE: 19980826
